FAERS Safety Report 9563911 (Version 1)
Quarter: 2013Q3

REPORT INFORMATION
  Report Type: Spontaneous
  Country: US (occurrence: US)
  Receive Date: 20130927
  Receipt Date: 20130927
  Transmission Date: 20140515
  Serious: No
  Sender: FDA-Public Use
  Company Number: US-009507513-1309USA013690

PATIENT
  Sex: Male

DRUGS (1)
  1. AFRIN SINUS SPRAY [Suspect]
     Indication: NASAL CONGESTION
     Dosage: UNK, UNKNOWN
     Route: 045

REACTIONS (2)
  - Eye irritation [Recovering/Resolving]
  - Accidental exposure to product [Unknown]
